FAERS Safety Report 18545107 (Version 1)
Quarter: 2020Q4

REPORT INFORMATION
  Report Type: Spontaneous
  Country: US (occurrence: US)
  Receive Date: 20201125
  Receipt Date: 20201125
  Transmission Date: 20210114
  Serious: Yes (Hospitalization)
  Sender: FDA-Public Use
  Company Number: None

PATIENT
  Sex: Female

DRUGS (1)
  1. AUSTEDO [Suspect]
     Active Substance: DEUTETRABENAZINE
     Indication: DYSKINESIA
     Route: 048
     Dates: start: 201805

REACTIONS (7)
  - Chest pain [None]
  - Inflammation [None]
  - Chondropathy [None]
  - Vitamin B12 decreased [None]
  - Lyme disease [None]
  - Pain in extremity [None]
  - Back pain [None]
